FAERS Safety Report 4982675-1 (Version None)
Quarter: 2006Q2

REPORT INFORMATION
  Report Type: 
  Country: None (occurrence: None)
  Receive Date: 20060425
  Receipt Date: 20050609
  Transmission Date: 20061013
  Serious: Yes (Hospitalization, Disabling)
  Sender: FDA-Public Use
  Company Number: US-MERCK-0506USA01555

PATIENT
  Age: 55 Year
  Sex: Male
  Weight: 82 kg

DRUGS (6)
  1. VIOXX [Suspect]
     Indication: ROTATOR CUFF SYNDROME
     Route: 048
     Dates: start: 20010601, end: 20010828
  2. ZESTORETIC [Concomitant]
     Indication: BLOOD PRESSURE
     Route: 065
  3. COVERA-HS [Concomitant]
     Indication: BLOOD PRESSURE
     Route: 065
  4. REGLAN [Concomitant]
     Route: 065
  5. PREVACID [Concomitant]
     Indication: GASTROOESOPHAGEAL REFLUX DISEASE
     Route: 065
  6. ASPIRIN [Concomitant]
     Route: 065

REACTIONS (14)
  - CHEST PAIN [None]
  - CONJUNCTIVITIS ALLERGIC [None]
  - CORONARY ARTERY DISEASE [None]
  - DYSLIPIDAEMIA [None]
  - FALL [None]
  - GASTROOESOPHAGEAL REFLUX DISEASE [None]
  - GLUCOSE TOLERANCE IMPAIRED [None]
  - HYPERTENSION [None]
  - MYOCARDIAL INFARCTION [None]
  - OESOPHAGEAL CARCINOMA [None]
  - RENAL DISORDER [None]
  - RESPIRATORY DISORDER [None]
  - ROTATOR CUFF SYNDROME [None]
  - SHOULDER PAIN [None]
